FAERS Safety Report 7681654-3 (Version None)
Quarter: 2011Q3

REPORT INFORMATION
  Report Type: 
  Country: None (occurrence: None)
  Receive Date: 20110812
  Receipt Date: 20110805
  Transmission Date: 20111222
  Serious: Yes (Other)
  Sender: FDA-Public Use
  Company Number: US-TEVA-295230USA

PATIENT
  Sex: Female

DRUGS (1)
  1. CLONAZEPAM [Suspect]

REACTIONS (6)
  - ABDOMINAL PAIN [None]
  - ABDOMINAL DISTENSION [None]
  - SWELLING [None]
  - INTRACRANIAL PRESSURE INCREASED [None]
  - DIARRHOEA [None]
  - EYE PAIN [None]
